FAERS Safety Report 16461908 (Version 1)
Quarter: 2019Q2

REPORT INFORMATION
  Report Type: Spontaneous
  Country: US (occurrence: US)
  Receive Date: 20190621
  Receipt Date: 20190621
  Transmission Date: 20190711
  Serious: No
  Sender: FDA-Public Use
  Company Number: US-TEVA-2019-US-1057522

PATIENT
  Sex: Male

DRUGS (1)
  1. CARVEDILOL TEVA [Suspect]
     Active Substance: CARVEDILOL
     Indication: HYPERTENSION
     Dates: start: 201901

REACTIONS (1)
  - Headache [Unknown]

NARRATIVE: CASE EVENT DATE: 201901
